FAERS Safety Report 17565632 (Version 4)
Quarter: 2020Q2

REPORT INFORMATION
  Report Type: Report from Study
  Country: KR (occurrence: KR)
  Receive Date: 20200320
  Receipt Date: 20200605
  Transmission Date: 20200713
  Serious: Yes (Hospitalization)
  Sender: FDA-Public Use
  Company Number: KR-ROCHE-2561956

PATIENT
  Age: 72 Year
  Sex: Male
  Weight: 64.9 kg

DRUGS (46)
  1. STOGAR [Concomitant]
     Active Substance: LAFUTIDINE
     Route: 065
     Dates: start: 20200303, end: 20200310
  2. BEECOM HEXA [Concomitant]
     Route: 065
     Dates: start: 20200205, end: 20200205
  3. MASI [Concomitant]
     Route: 065
     Dates: start: 20200106, end: 20200106
  4. MUCOPECT [Concomitant]
     Route: 065
     Dates: start: 20200117, end: 20200210
  5. BEECOM HEXA [Concomitant]
     Route: 065
     Dates: start: 20200106, end: 20200106
  6. VITAMO [Concomitant]
     Route: 065
     Dates: start: 20200226, end: 20200226
  7. ASCORBIC ACID. [Concomitant]
     Active Substance: ASCORBIC ACID
     Route: 065
     Dates: start: 20200106, end: 20200106
  8. ASCORBIC ACID. [Concomitant]
     Active Substance: ASCORBIC ACID
     Route: 065
     Dates: start: 20200205, end: 20200205
  9. LUTHIONE [Concomitant]
     Route: 065
     Dates: start: 20200106, end: 20200106
  10. CRAVIT [Concomitant]
     Active Substance: LEVOFLOXACIN
     Route: 065
     Dates: start: 20200129, end: 20200204
  11. POTENAMIN [ALANINE;ARGININE;ASPARTIC ACID;CYSTEINE HYDROCHLORIDE MONOH [Concomitant]
     Route: 065
     Dates: start: 20200128, end: 20200128
  12. GINEXIN-F [Concomitant]
     Route: 065
     Dates: start: 20200422, end: 20200427
  13. DEXAMETHASONE. [Concomitant]
     Active Substance: DEXAMETHASONE
     Indication: BRAIN OEDEMA
     Route: 042
     Dates: start: 20200427
  14. BEECOM HEXA [Concomitant]
     Route: 065
     Dates: start: 20200226, end: 20200226
  15. MASI [Concomitant]
     Route: 065
     Dates: start: 20200226, end: 20200226
  16. LUTHIONE [Concomitant]
     Route: 065
     Dates: start: 20200205, end: 20200205
  17. CRAVIT [Concomitant]
     Active Substance: LEVOFLOXACIN
     Indication: ANTIBIOTIC PROPHYLAXIS
     Route: 065
     Dates: start: 20200117, end: 20200122
  18. SUDAFED [Concomitant]
     Active Substance: PSEUDOEPHEDRINE HYDROCHLORIDE
     Route: 065
     Dates: start: 20200122, end: 20200131
  19. ASCORBIC ACID. [Concomitant]
     Active Substance: ASCORBIC ACID
     Route: 065
     Dates: start: 20200226, end: 20200226
  20. CAROL-F [Concomitant]
     Route: 065
     Dates: start: 20200303, end: 20200310
  21. ATEZOLIZUMAB. [Suspect]
     Active Substance: ATEZOLIZUMAB
     Indication: NON-SMALL CELL LUNG CANCER
     Dosage: ON 29/OCT/2019 MOST RECENT DOSE OF ATEZOLIZUMAB PRIOR TO SAE ONSET WAS RECEIVED.
     Route: 041
     Dates: start: 20190819
  22. TRESTAN [CARNITINE HYDROCHLORIDE;CYANOCOBALAMIN;CYPROHEPTADINE OROTATE [Concomitant]
     Route: 065
     Dates: start: 20191014
  23. XYZAL [Concomitant]
     Active Substance: LEVOCETIRIZINE DIHYDROCHLORIDE
     Indication: INFLAMMATION
     Route: 065
     Dates: start: 20200113, end: 20200209
  24. METHYLONE [Concomitant]
     Active Substance: METHYLPREDNISOLONE
     Indication: INFLAMMATION
     Route: 048
     Dates: start: 20191226, end: 20200108
  25. PENIRAMIN [Concomitant]
     Route: 065
     Dates: start: 20191226, end: 20191228
  26. MASI [Concomitant]
     Route: 065
     Dates: start: 20200205, end: 20200205
  27. VITAMO [Concomitant]
     Route: 065
     Dates: start: 20200205, end: 20200205
  28. BENPROPERINE [Concomitant]
     Active Substance: BENPROPERINE
     Route: 065
     Dates: start: 20200117, end: 20200131
  29. NASEA [Concomitant]
     Active Substance: RAMOSETRON HYDROCHLORIDE
     Route: 065
     Dates: start: 20200303, end: 20200303
  30. GASTER [Concomitant]
     Active Substance: FAMOTIDINE
     Route: 065
     Dates: start: 20200427
  31. K CAB [Concomitant]
     Route: 065
     Dates: start: 20200427
  32. TARGIN [Concomitant]
     Active Substance: NALOXONE HYDROCHLORIDE\OXYCODONE HYDROCHLORIDE
     Route: 065
     Dates: start: 20200129, end: 20200212
  33. EBASTEL [Concomitant]
     Active Substance: EBASTINE
     Route: 065
     Dates: start: 20200113, end: 20200209
  34. LUTHIONE [Concomitant]
     Route: 065
     Dates: start: 20200226, end: 20200226
  35. FLUMARIN [FLOMOXEF SODIUM] [Concomitant]
     Active Substance: FLOMOXEF SODIUM
     Route: 065
     Dates: start: 20200303, end: 20200303
  36. MEGACE ORAL SUSPENSION [Concomitant]
     Route: 048
     Dates: start: 20191226, end: 20200108
  37. MANNITOL. [Concomitant]
     Active Substance: MANNITOL
     Indication: BRAIN OEDEMA
     Route: 065
     Dates: start: 20200427
  38. PEMETREXED. [Suspect]
     Active Substance: PEMETREXED
     Indication: NON-SMALL CELL LUNG CANCER
     Dosage: ON 29/OCT/2019, MOST RECENT DOSE OF PEMETREXED PRIOR TO AE ONSET WAS RECEIVED.?PEMETREXED 500 MG/M^2
     Route: 042
     Dates: start: 20190819
  39. CISPLATIN. [Suspect]
     Active Substance: CISPLATIN
     Indication: NON-SMALL CELL LUNG CANCER
     Dosage: ON 29/OCT/2019 MOST RECENT DOSE (131.2 MG) OF CISPLATIN PRIOR TO AE ONSET WAS RECEIVED.?CISPLATIN 75
     Route: 042
     Dates: start: 20190819
  40. ADVANTAN [Concomitant]
     Active Substance: METHYLPREDNISOLONE ACEPONATE
     Indication: INFLAMMATION
     Route: 061
     Dates: start: 20191226, end: 20200209
  41. TARGIN [Concomitant]
     Active Substance: NALOXONE HYDROCHLORIDE\OXYCODONE HYDROCHLORIDE
     Indication: PAIN
     Route: 065
     Dates: start: 20191215, end: 20200112
  42. TARGIN [Concomitant]
     Active Substance: NALOXONE HYDROCHLORIDE\OXYCODONE HYDROCHLORIDE
     Route: 065
     Dates: start: 20200226, end: 20200313
  43. FOLCID [Concomitant]
     Route: 065
     Dates: start: 20190810, end: 20191121
  44. STOGAR [Concomitant]
     Active Substance: LAFUTIDINE
     Route: 065
     Dates: start: 20191226, end: 20200108
  45. VITAMO [Concomitant]
     Route: 065
     Dates: start: 20200106, end: 20200106
  46. MUCOPECT [Concomitant]
     Route: 065
     Dates: start: 20200303, end: 20200310

REACTIONS (1)
  - Paralysis recurrent laryngeal nerve [Recovering/Resolving]

NARRATIVE: CASE EVENT DATE: 20191212
